FAERS Safety Report 9680121 (Version 2)
Quarter: 2013Q4

REPORT INFORMATION
  Report Type: Spontaneous
  Country: GB (occurrence: GB)
  Receive Date: 20131111
  Receipt Date: 20131111
  Transmission Date: 20140711
  Serious: Yes (Disabling, Other)
  Sender: FDA-Public Use
  Company Number: GB-009507513-1308GBR006503

PATIENT
  Age: 71 Year
  Sex: Male

DRUGS (1)
  1. COSOPT 20 MG/ML + 5 MG/ML, EYE DROPS, SOLUTION [Suspect]
     Indication: GLAUCOMA
     Dosage: UNK UNK, QD
     Route: 047
     Dates: start: 20130812

REACTIONS (5)
  - Superficial injury of eye [Not Recovered/Not Resolved]
  - Injury corneal [Not Recovered/Not Resolved]
  - Visual acuity reduced [Not Recovered/Not Resolved]
  - Ocular hyperaemia [Not Recovered/Not Resolved]
  - Product quality issue [Unknown]
